FAERS Safety Report 5717010-4 (Version None)
Quarter: 2008Q2

REPORT INFORMATION
  Report Type: 
  Country: None (occurrence: None)
  Receive Date: 20080423
  Receipt Date: 20080409
  Transmission Date: 20081010
  Serious: Yes (Other)
  Sender: FDA-Public Use
  Company Number: 2007BI020026

PATIENT
  Age: 59 Year
  Sex: Female

DRUGS (2)
  1. TYSABRI [Suspect]
     Indication: MULTIPLE SCLEROSIS
     Dosage: 300 MG; QM; IV
     Route: 042
     Dates: start: 20070418
  2. AVONEX [Concomitant]

REACTIONS (9)
  - CHRONIC LYMPHOCYTIC LEUKAEMIA [None]
  - DEMENTIA [None]
  - LEUKAEMIA [None]
  - LYMPHOCYTIC LYMPHOMA [None]
  - LYMPHOPROLIFERATIVE DISORDER [None]
  - MANTLE CELL LYMPHOMA [None]
  - MOBILITY DECREASED [None]
  - TREATMENT NONCOMPLIANCE [None]
  - WHEELCHAIR USER [None]
